FAERS Safety Report 4617794-2 (Version None)
Quarter: 2005Q1

REPORT INFORMATION
  Report Type: 
  Country: None (occurrence: None)
  Receive Date: 20050322
  Receipt Date: 20050309
  Transmission Date: 20050727
  Serious: Yes (Other)
  Sender: FDA-Public Use
  Company Number: 2005029846

PATIENT
  Age: 50 Year
  Sex: Male

DRUGS (4)
  1. PHENYTOIN SODIUM [Suspect]
     Indication: CONVULSION
     Dosage: 400 MG (200 MG, 2 IN 1 D), ORAL
     Route: 048
  2. THIORIDAZINE HCL [Suspect]
     Indication: CONVULSION
  3. DIAZEPAM [Concomitant]
  4. THIORIDAZINE HCL [Concomitant]

REACTIONS (2)
  - ANTICONVULSANT DRUG LEVEL INCREASED [None]
  - CONVULSION [None]
